FAERS Safety Report 9003201 (Version 1)
Quarter: 2013Q1

REPORT INFORMATION
  Report Type: Spontaneous
  Country: NL (occurrence: NL)
  Receive Date: 20130108
  Receipt Date: 20130108
  Transmission Date: 20140127
  Serious: Yes (Hospitalization)
  Sender: FDA-Public Use
  Company Number: PHHY2013NL001459

PATIENT
  Age: 75 Year
  Sex: Female

DRUGS (2)
  1. DICLOFENAC [Suspect]
     Dosage: 50 MG, TID
     Dates: start: 2012
  2. SINTROM MITIS [Interacting]
     Indication: ATRIAL FIBRILLATION
     Dosage: 1 DF, UNK
     Dates: start: 20120823, end: 20120823

REACTIONS (2)
  - Post procedural haemorrhage [Recovering/Resolving]
  - Drug interaction [Recovering/Resolving]
